FAERS Safety Report 9888334 (Version 1)
Quarter: 2014Q1

REPORT INFORMATION
  Report Type: Spontaneous
  Country: US (occurrence: US)
  Receive Date: 20140211
  Receipt Date: 20140211
  Transmission Date: 20141002
  Serious: No
  Sender: FDA-Public Use
  Company Number: US-PFIZER INC-2014034814

PATIENT
  Age: 18 Year
  Sex: Female

DRUGS (1)
  1. ADVIL [Suspect]
     Dosage: 50 PILLS, AT ONCE
     Dates: start: 20140205

REACTIONS (2)
  - Overdose [Unknown]
  - Abdominal pain upper [Unknown]
